FAERS Safety Report 8401881-7 (Version None)
Quarter: 2012Q2

REPORT INFORMATION
  Report Type: 
  Country: None (occurrence: None)
  Receive Date: 20120601
  Receipt Date: 20110830
  Transmission Date: 20120825
  Serious: No
  Sender: FDA-Public Use
  Company Number: US-ABBOTT-11P-163-0850718-00

PATIENT
  Sex: Male
  Weight: 86.26 kg

DRUGS (1)
  1. DRONABINOL [Suspect]
     Indication: MOVEMENT DISORDER
     Dosage: 5MG/60,
     Dates: start: 20110829

REACTIONS (2)
  - DRUG EFFECT DECREASED [None]
  - PRODUCT PHYSICAL ISSUE [None]
